FAERS Safety Report 6998547-7 (Version None)
Quarter: 2010Q3

REPORT INFORMATION
  Report Type: 
  Country: None (occurrence: None)
  Receive Date: 20100920
  Receipt Date: 20091029
  Transmission Date: 20110219
  Serious: No
  Sender: FDA-Public Use
  Company Number: US-ASTRAZENECA-2009SE23341

PATIENT
  Age: 25 Year
  Sex: Female

DRUGS (4)
  1. SEROQUEL XR [Suspect]
     Indication: INSOMNIA
     Route: 048
     Dates: start: 20091029
  2. KLONOPIN [Concomitant]
     Indication: INSOMNIA
  3. BENADRYL [Concomitant]
     Indication: INSOMNIA
  4. SYNTHROID [Concomitant]

REACTIONS (1)
  - FEELING ABNORMAL [None]
